FAERS Safety Report 9393022 (Version 2)
Quarter: 2013Q3

REPORT INFORMATION
  Report Type: Spontaneous
  Country: IE (occurrence: IE)
  Receive Date: 20130710
  Receipt Date: 20130726
  Transmission Date: 20140515
  Serious: Yes (Hospitalization)
  Sender: FDA-Public Use
  Company Number: IE-AMGEN-IRLSP2013046842

PATIENT
  Age: 70 Year
  Sex: Female

DRUGS (2)
  1. NEULASTA [Suspect]
     Indication: LYMPHOMA
     Dosage: 6 MG, Q3WK
     Route: 058
     Dates: start: 20130607, end: 20130701
  2. CHEMOTHERAPEUTICS [Concomitant]
     Indication: LYMPHOMA
     Dosage: UNK

REACTIONS (1)
  - Kidney infection [Recovered/Resolved]
